FAERS Safety Report 10074543 (Version 1)
Quarter: 2014Q2

REPORT INFORMATION
  Report Type: Spontaneous
  Country: US (occurrence: US)
  Receive Date: 20140411
  Receipt Date: 20140411
  Transmission Date: 20141212
  Serious: No
  Sender: FDA-Public Use
  Company Number: US-SA-2014SA002056

PATIENT
  Age: 68 Year
  Sex: Female
  Weight: 81.6 kg

DRUGS (10)
  1. ALLEGRA D [Suspect]
     Indication: HYPERSENSITIVITY
     Route: 048
  2. ALLEGRA D [Suspect]
     Indication: HYPERSENSITIVITY
     Route: 048
  3. AMLODIPINE [Concomitant]
  4. METOPROLOL [Concomitant]
  5. BENICAR [Concomitant]
  6. PRAVASTATIN [Concomitant]
  7. ASPIRIN [Concomitant]
  8. MULTIVITAMINS [Concomitant]
  9. OMEPRAZOLE [Concomitant]
  10. MECLIZINE [Concomitant]

REACTIONS (2)
  - Medication residue present [Unknown]
  - Drug ineffective [Unknown]
